FAERS Safety Report 25805448 (Version 3)
Quarter: 2025Q4

REPORT INFORMATION
  Report Type: Report from Study
  Country: US (occurrence: US)
  Receive Date: 20250916
  Receipt Date: 20251020
  Transmission Date: 20260118
  Serious: Yes (Other)
  Sender: ABBVIE
  Company Number: US-ABBVIE-6458716

PATIENT
  Age: 72 Year
  Sex: Female
  Weight: 90.718 kg

DRUGS (1)
  1. VENCLEXTA [Suspect]
     Active Substance: VENETOCLAX
     Indication: Chronic lymphocytic leukaemia
     Dosage: STOP DATE: 2025
     Route: 048
     Dates: start: 20250122

REACTIONS (2)
  - Basal cell carcinoma [Unknown]
  - Breast cancer [Unknown]

NARRATIVE: CASE EVENT DATE: 20250101
